FAERS Safety Report 8471484-7 (Version None)
Quarter: 2012Q2

REPORT INFORMATION
  Report Type: 
  Country: None (occurrence: None)
  Receive Date: 20120627
  Receipt Date: 20120619
  Transmission Date: 20120825
  Serious: Yes (Other)
  Sender: FDA-Public Use
  Company Number: US-COVIDIEN/TYCO HEALTHCARE/MALLINCKRODT-T201200696

PATIENT
  Sex: Male

DRUGS (5)
  1. ZYRTEC [Concomitant]
     Indication: HYPERSENSITIVITY
     Dosage: 1 TAB PRN
  2. PAMELOR [Suspect]
     Indication: ENURESIS
  3. ALBUTEROL [Concomitant]
     Indication: ASTHMA
     Dosage: 2 PUFFS PRN
  4. PAMELOR [Suspect]
     Indication: DEPRESSION
     Dosage: 75 MG AT BEDTIME
     Route: 048
  5. LONG ACTING INHALER [Concomitant]
     Indication: ASTHMA
     Dosage: UNK

REACTIONS (15)
  - SUNBURN [None]
  - ENURESIS [None]
  - MYDRIASIS [None]
  - HYPOHIDROSIS [None]
  - CONFUSIONAL STATE [None]
  - DYSPNOEA [None]
  - SKIN EXFOLIATION [None]
  - VISION BLURRED [None]
  - SOMNOLENCE [None]
  - TOOTH EROSION [None]
  - FEELING HOT [None]
  - HEADACHE [None]
  - BODY HEIGHT BELOW NORMAL [None]
  - WEIGHT GAIN POOR [None]
  - VOMITING [None]
